FAERS Safety Report 24845212 (Version 3)
Quarter: 2025Q4

REPORT INFORMATION
  Report Type: Report from Study
  Country: US (occurrence: US)
  Receive Date: 20250115
  Receipt Date: 20251224
  Transmission Date: 20260117
  Serious: No
  Sender: PFIZER
  Company Number: US-PFIZER INC-202300316478

PATIENT
  Age: 72 Year
  Sex: Male

DRUGS (14)
  1. CIBINQO [Suspect]
     Active Substance: ABROCITINIB
     Indication: Pruritus
     Dosage: 100 MG, 1X/DAY
     Route: 048
     Dates: start: 2023
  2. CIBINQO [Suspect]
     Active Substance: ABROCITINIB
     Indication: Dermatitis atopic
  3. ACETAMINOPHEN [Concomitant]
     Active Substance: ACETAMINOPHEN
     Dosage: UNK
  4. AFINITOR [Concomitant]
     Active Substance: EVEROLIMUS
     Indication: Neoplasm
     Dosage: UNK
  5. ASPIRIN [Concomitant]
     Active Substance: ASPIRIN
     Dosage: UNK
  6. CARVEDILOL [Concomitant]
     Active Substance: CARVEDILOL
     Dosage: UNK
  7. LANTUS [Concomitant]
     Active Substance: INSULIN GLARGINE
     Dosage: UNK
  8. LIPITOR [Concomitant]
     Active Substance: ATORVASTATIN CALCIUM
     Dosage: UNK
  9. MAGNESIUM [Concomitant]
     Active Substance: MAGNESIUM
     Dosage: UNK
  10. METFORMIN [Concomitant]
     Active Substance: METFORMIN HYDROCHLORIDE
     Dosage: UNK
  11. PANTOPRAZOLE [Concomitant]
     Active Substance: PANTOPRAZOLE
     Dosage: UNK
  12. POTASSIUM [Concomitant]
     Active Substance: POTASSIUM
     Dosage: UNK
  13. VITAMIN C [Concomitant]
     Active Substance: ASCORBIC ACID
     Dosage: UNK
  14. VITAMIN B [Concomitant]
     Active Substance: VITAMIN B
     Dosage: UNK

REACTIONS (3)
  - Cough [Unknown]
  - Off label use [Unknown]
  - Product use issue [Unknown]

NARRATIVE: CASE EVENT DATE: 20230101
